FAERS Safety Report 7925328-X (Version None)
Quarter: 2011Q4

REPORT INFORMATION
  Report Type: 
  Country: None (occurrence: None)
  Receive Date: 20111118
  Receipt Date: 20110405
  Transmission Date: 20120403
  Serious: No
  Sender: FDA-Public Use
  Company Number: US-AMGEN-USASP2011017974

PATIENT
  Sex: Female

DRUGS (6)
  1. CITRACAL                           /00471001/ [Concomitant]
  2. LEXAPRO [Concomitant]
     Dosage: 5 MG, UNK
  3. MULTIVITAMIN                       /00097801/ [Concomitant]
  4. ENBREL [Suspect]
     Indication: PRODUCT USED FOR UNKNOWN INDICATION
     Dosage: 50 MG, QWK
  5. FISH OIL [Concomitant]
  6. ESTER-C                            /00008001/ [Concomitant]

REACTIONS (5)
  - INJECTION SITE ERYTHEMA [None]
  - INJECTION SITE INFLAMMATION [None]
  - INJECTION SITE PRURITUS [None]
  - INFLUENZA [None]
  - VIRAL INFECTION [None]
